FAERS Safety Report 13886868 (Version 1)
Quarter: 2017Q3

REPORT INFORMATION
  Report Type: Spontaneous
  Country: US (occurrence: US)
  Receive Date: 20170821
  Receipt Date: 20170821
  Transmission Date: 20171127
  Serious: No
  Sender: FDA-Public Use
  Company Number: US-ROCHE-1122385

PATIENT
  Sex: Female
  Weight: 34.96 kg

DRUGS (1)
  1. ACTEMRA [Suspect]
     Active Substance: TOCILIZUMAB
     Indication: RHEUMATOID ARTHRITIS
     Route: 042
     Dates: start: 20120301

REACTIONS (3)
  - Urinary tract infection [Unknown]
  - Renal impairment [Unknown]
  - Blood creatinine increased [Unknown]
